FAERS Safety Report 5004211-6 (Version None)
Quarter: 2006Q2

REPORT INFORMATION
  Report Type: 
  Country: None (occurrence: None)
  Receive Date: 20060511
  Receipt Date: 20060503
  Transmission Date: 20061013
  Serious: Yes (Death)
  Sender: FDA-Public Use
  Company Number: 20060092 /

PATIENT
  Sex: Female

DRUGS (1)
  1. VENOFER [Suspect]
     Dosage: 500MG INFUSION

REACTIONS (2)
  - CARDIAC ARREST [None]
  - HYPOTENSION [None]
